FAERS Safety Report 10017193 (Version 2)
Quarter: 2014Q2

REPORT INFORMATION
  Report Type: Spontaneous
  Country: US (occurrence: US)
  Receive Date: 20140318
  Receipt Date: 20140408
  Transmission Date: 20141212
  Serious: Yes (Life-Threatening, Hospitalization)
  Sender: FDA-Public Use
  Company Number: US-CELGENEUS-163-21880-14031092

PATIENT
  Sex: Male
  Weight: 116.7 kg

DRUGS (4)
  1. REVLIMID [Suspect]
     Indication: PLASMA CELL MYELOMA
     Dosage: 25 MILLIGRAM
     Route: 048
     Dates: start: 20131105, end: 20140225
  2. REVLIMID [Suspect]
     Route: 048
     Dates: start: 20131105, end: 201403
  3. MLN9708 [Suspect]
     Indication: PLASMA CELL MYELOMA
     Route: 065
     Dates: start: 20131105, end: 20140225
  4. DEXAMETHASONE [Suspect]
     Indication: PLASMA CELL MYELOMA
     Route: 048
     Dates: start: 20131105, end: 20140225

REACTIONS (2)
  - Sepsis [Not Recovered/Not Resolved]
  - Pneumonitis [Not Recovered/Not Resolved]
